FAERS Safety Report 15969456 (Version 2)
Quarter: 2019Q1

REPORT INFORMATION
  Report Type: Report from Study
  Country: US (occurrence: US)
  Receive Date: 20190215
  Receipt Date: 20190318
  Transmission Date: 20190418
  Serious: Yes (Hospitalization)
  Sender: FDA-Public Use
  Company Number: US-ACTELION-A-NJ2019-186342

PATIENT
  Sex: Female

DRUGS (2)
  1. ADCIRCA [Concomitant]
     Active Substance: TADALAFIL
  2. OPSUMIT [Suspect]
     Active Substance: MACITENTAN
     Indication: PULMONARY HYPERTENSION
     Dosage: 10 MG, QD
     Route: 048

REACTIONS (10)
  - Contusion [Unknown]
  - Asthenia [Unknown]
  - Urinary tract infection [Unknown]
  - Decreased appetite [Unknown]
  - Weight decreased [Unknown]
  - Palpitations [Recovered/Resolved]
  - Dyspnoea [Recovered/Resolved]
  - Corneal abrasion [Unknown]
  - Fall [Unknown]
  - Pneumonia aspiration [Unknown]
